FAERS Safety Report 8247399-6 (Version None)
Quarter: 2012Q1

REPORT INFORMATION
  Report Type: 
  Country: None (occurrence: None)
  Receive Date: 20120330
  Receipt Date: 20120326
  Transmission Date: 20120608
  Serious: No
  Sender: FDA-Public Use
  Company Number: US-PFIZER INC-2012078423

PATIENT
  Sex: Male
  Weight: 63.946 kg

DRUGS (5)
  1. NAPROXEN (ALEVE) [Concomitant]
     Indication: ARTHRITIS
     Dosage: 220 MG, AS NEEDED
  2. SUTENT [Suspect]
     Indication: GASTRIC NEOPLASM
  3. TYLENOL [Concomitant]
     Indication: ARTHRITIS
     Dosage: 650 MG, AS NEEDED
  4. GABAPENTIN [Concomitant]
     Indication: NERVOUS SYSTEM DISORDER
     Dosage: 300 MG, 2X/DAY
  5. SUTENT [Suspect]
     Indication: PANCREATIC DISORDER
     Dosage: 150 MG, ALTERNATE DAY
     Dates: start: 20120101

REACTIONS (2)
  - HEADACHE [None]
  - DIARRHOEA [None]
